FAERS Safety Report 12590014 (Version 1)
Quarter: 2016Q3

REPORT INFORMATION
  Report Type: Report from Study
  Country: US (occurrence: US)
  Receive Date: 20160725
  Receipt Date: 20160725
  Transmission Date: 20161109
  Serious: Yes (Other)
  Sender: FDA-Public Use
  Company Number: PHEH2016US018177

PATIENT
  Sex: Male
  Weight: 126.98 kg

DRUGS (1)
  1. GILENYA [Suspect]
     Active Substance: FINGOLIMOD HYDROCHLORIDE
     Indication: MULTIPLE SCLEROSIS
     Dosage: 0.5 MG, QD
     Route: 048
     Dates: start: 20160707

REACTIONS (4)
  - Diarrhoea [Unknown]
  - Renal impairment [Unknown]
  - Urine output decreased [Unknown]
  - Pyrexia [Unknown]
